FAERS Safety Report 25566821 (Version 1)
Quarter: 2025Q3

REPORT INFORMATION
  Report Type: Spontaneous
  Country: US (occurrence: None)
  Receive Date: 20250715
  Receipt Date: 20250715
  Transmission Date: 20251021
  Serious: Yes (Life-Threatening, Disabling)
  Sender: FDA-CTU
  Company Number: None

PATIENT
  Age: 57 Year
  Sex: Female
  Weight: 51.75 kg

DRUGS (12)
  1. QULIPTA [Suspect]
     Active Substance: ATOGEPANT
     Indication: Migraine
     Dosage: OTHER QUANTITY : 1 TABLET(S);?FREQUENCY : DAILY;?
     Route: 048
     Dates: start: 20250707, end: 20250711
  2. Medication pump with Dilaudid [Concomitant]
  3. ACETAMINOPHEN\OXYCODONE HYDROCHLORIDE [Concomitant]
     Active Substance: ACETAMINOPHEN\OXYCODONE HYDROCHLORIDE
  4. TIZANIDINE [Concomitant]
     Active Substance: TIZANIDINE
  5. NURTEC ODT [Concomitant]
     Active Substance: RIMEGEPANT SULFATE
  6. FIORICET [Concomitant]
     Active Substance: ACETAMINOPHEN\BUTALBITAL\CAFFEINE
  7. HYDROCHLOROTHIAZIDE [Concomitant]
     Active Substance: HYDROCHLOROTHIAZIDE
  8. ASPIRIN [Concomitant]
     Active Substance: ASPIRIN
  9. Topirimate extended release [Concomitant]
  10. ALBUTEROL [Concomitant]
     Active Substance: ALBUTEROL
  11. KIRKLAND SIGNATURE ALLERCLEAR [Concomitant]
     Active Substance: LORATADINE
  12. Adult Multi-Vitamin Gummies [Concomitant]

REACTIONS (20)
  - Spinal cord injury [None]
  - Autonomic dysreflexia [None]
  - Dyspnoea [None]
  - Headache [None]
  - Vomiting [None]
  - Nausea [None]
  - Muscle spasms [None]
  - Arthralgia [None]
  - Gait inability [None]
  - Dysphagia [None]
  - Body temperature abnormal [None]
  - Decreased appetite [None]
  - Neuropathy peripheral [None]
  - Skin burning sensation [None]
  - Paraesthesia [None]
  - Hypoaesthesia [None]
  - Respiratory tract congestion [None]
  - Fatigue [None]
  - Insomnia [None]
  - Anxiety [None]

NARRATIVE: CASE EVENT DATE: 20250709
